FAERS Safety Report 5598655-1 (Version None)
Quarter: 2008Q1

REPORT INFORMATION
  Report Type: 
  Country: None (occurrence: None)
  Receive Date: 20080122
  Receipt Date: 20080114
  Transmission Date: 20080703
  Serious: Yes (Hospitalization)
  Sender: FDA-Public Use
  Company Number: FR-ROCHE-483348

PATIENT
  Age: 66 Year
  Sex: Male
  Weight: 99 kg

DRUGS (10)
  1. VALGANCICLOVIR HCL [Suspect]
     Indication: DRUG USE FOR UNKNOWN INDICATION
     Dosage: ROVALCYTE
     Route: 065
     Dates: start: 20070119
  2. MYCOPHENOLATE MOFETIL [Suspect]
     Route: 065
     Dates: start: 20070115
  3. SULFAMETHOXAZOLE AND TRIMETHOPRIM [Suspect]
     Indication: DRUG USE FOR UNKNOWN INDICATION
     Dosage: BACTRIM
     Route: 065
     Dates: start: 20070119
  4. RANITIDINE HCL [Suspect]
     Indication: DRUG USE FOR UNKNOWN INDICATION
     Route: 065
     Dates: start: 20070115
  5. NEORAL [Suspect]
     Route: 065
     Dates: start: 20070117
  6. DEPAKENE [Suspect]
     Indication: DRUG USE FOR UNKNOWN INDICATION
     Route: 065
     Dates: start: 20070116
  7. TENORMIN [Concomitant]
     Dates: start: 20070126, end: 20070209
  8. LASIX [Concomitant]
     Dates: start: 20070131, end: 20070202
  9. AUGMENTIN '250' [Concomitant]
     Dates: start: 20070130, end: 20070207
  10. VALIUM [Concomitant]
     Indication: DRUG USE FOR UNKNOWN INDICATION
     Dates: start: 20070131, end: 20070205

REACTIONS (2)
  - PHLEBITIS [None]
  - RENAL TUBULAR NECROSIS [None]
